FAERS Safety Report 7725746-9 (Version None)
Quarter: 2011Q3

REPORT INFORMATION
  Report Type: 
  Country: None (occurrence: None)
  Receive Date: 20110902
  Receipt Date: 20110822
  Transmission Date: 20111222
  Serious: Yes (Other)
  Sender: FDA-Public Use
  Company Number: DE-JNJFOC-20110806079

PATIENT
  Sex: Female
  Weight: 81 kg

DRUGS (6)
  1. PALEXIA [Suspect]
     Route: 065
     Dates: start: 20101201, end: 20110318
  2. AMITRIPTYLINE HCL [Concomitant]
     Route: 065
  3. TILIDIN [Concomitant]
     Route: 065
  4. PREGABALIN [Concomitant]
     Route: 065
  5. PALEXIA [Suspect]
     Indication: BACK PAIN
     Route: 065
     Dates: start: 20101128, end: 20101201
  6. MUSCLE RELAXANTS [Concomitant]
     Route: 065

REACTIONS (5)
  - BLOOD PRESSURE ORTHOSTATIC DECREASED [None]
  - DIZZINESS [None]
  - BLOOD PRESSURE DECREASED [None]
  - NAUSEA [None]
  - CIRCULATORY COLLAPSE [None]
